FAERS Safety Report 25954703 (Version 1)
Quarter: 2025Q4

REPORT INFORMATION
  Report Type: Spontaneous
  Country: US (occurrence: US)
  Receive Date: 20251024
  Receipt Date: 20251024
  Transmission Date: 20260118
  Serious: No
  Sender: ROCHE
  Company Number: US-ROCHE-10000416067

PATIENT
  Age: 46 Year
  Sex: Male

DRUGS (10)
  1. BEVACIZUMAB [Suspect]
     Active Substance: BEVACIZUMAB
     Indication: Diabetic retinal oedema
     Route: 050
  2. VANCOMYCIN [Concomitant]
     Active Substance: VANCOMYCIN
     Route: 050
  3. VANCOMYCIN [Concomitant]
     Active Substance: VANCOMYCIN
     Dosage: 16 MCG/ML
  4. CEFTAZIDIME [Concomitant]
     Active Substance: CEFTAZIDIME
     Route: 050
  5. DEXAMETHASONE [Concomitant]
     Active Substance: DEXAMETHASONE
  6. LEVOFLOXACIN [Concomitant]
     Active Substance: LEVOFLOXACIN
     Route: 048
  7. LEVOFLOXACIN [Concomitant]
     Active Substance: LEVOFLOXACIN
     Dosage: 0.5 MCG/ML
  8. AMIKACIN [Concomitant]
     Active Substance: AMIKACIN
  9. AMPICILLIN [Concomitant]
     Active Substance: AMPICILLIN
     Dosage: 2 MCG/ML
  10. GENTAMICIN [Concomitant]
     Active Substance: GENTAMICIN

REACTIONS (3)
  - Off label use [Unknown]
  - Off label use [Unknown]
  - No adverse event [Unknown]
